FAERS Safety Report 14665952 (Version 11)
Quarter: 2018Q3

REPORT INFORMATION
  Report Type: Spontaneous
  Country: GR (occurrence: GR)
  Receive Date: 20180321
  Receipt Date: 20180704
  Transmission Date: 20181010
  Serious: Yes (Hospitalization)
  Sender: FDA-Public Use
  Company Number: GR-009507513-1803GRC007204

PATIENT
  Age: 48 Year
  Sex: Female

DRUGS (6)
  1. AERIUS [Suspect]
     Active Substance: DESLORATADINE
     Indication: INFECTION
     Dosage: 1 DF, HS / 5 MG/TAB INFECTION (DOSAGE SCHEME: ONCE DAILY) / 1 TAB EVERY NIGHT
     Route: 048
     Dates: start: 201801, end: 2018
  2. AERIUS [Suspect]
     Active Substance: DESLORATADINE
     Indication: SEASONAL ALLERGY
     Dosage: 1 TABLET AT 2:00 AT NOON
     Route: 048
     Dates: start: 20180227, end: 20180423
  3. AERIUS [Suspect]
     Active Substance: DESLORATADINE
     Dosage: 5MG/TAB INFECTION (DOSAGE SCHEME: ONCE DAILY)/ 1 TAB EVERY NIGHT
     Route: 048
     Dates: start: 20180103, end: 2018
  4. NEXIUM [Concomitant]
     Active Substance: ESOMEPRAZOLE MAGNESIUM
     Indication: GASTROINTESTINAL DISORDER
     Dosage: 2?3 WEEKS, AFTER HER 1ST AND 2ND DISCHARGE FROM HOSPITAL
  5. CORTISONE [Concomitant]
     Active Substance: CORTISONE\HYDROCORTISONE
     Indication: BRONCHIOLITIS
     Dosage: FOR 4?5 DAYS
  6. SINGULAIR [Suspect]
     Active Substance: MONTELUKAST SODIUM
     Dosage: UNK
     Route: 048
     Dates: start: 201801, end: 2018

REACTIONS (5)
  - Allergy to plants [Unknown]
  - Back pain [Recovered/Resolved]
  - Fear [Recovered/Resolved]
  - Nightmare [Not Recovered/Not Resolved]
  - Product use in unapproved indication [Unknown]

NARRATIVE: CASE EVENT DATE: 2018
